FAERS Safety Report 22751627 (Version 3)
Quarter: 2024Q3

REPORT INFORMATION
  Report Type: Spontaneous
  Country: CA (occurrence: CA)
  Receive Date: 20230726
  Receipt Date: 20240829
  Transmission Date: 20241016
  Serious: Yes (Other)
  Sender: ASTELLAS
  Company Number: CA-ASTELLAS-2023US021972

PATIENT
  Age: 63 Year
  Sex: Male

DRUGS (6)
  1. XTANDI [Suspect]
     Active Substance: ENZALUTAMIDE
     Indication: Prostate cancer
     Dosage: 160 MG, ONCE DAILY (1 EVERY 1 DAYS)
     Route: 048
  2. ELIGARD [Suspect]
     Active Substance: LEUPROLIDE ACETATE
     Indication: Prostate cancer
     Dosage: 22.5 MG, OTHER (1 EVERY 3 MONTHS)
     Route: 058
  3. LUPRON DEPOT [Suspect]
     Active Substance: LEUPROLIDE ACETATE
     Indication: Prostate cancer
     Dosage: 22.5 MG, UNKNOWN FREQ.
     Route: 030
  4. LUPRON DEPOT [Suspect]
     Active Substance: LEUPROLIDE ACETATE
     Dosage: 22.5 MG, UNKNOWN FREQ.
     Route: 030
     Dates: start: 202104
  5. LUPRON DEPOT [Suspect]
     Active Substance: LEUPROLIDE ACETATE
     Dosage: 22.5 MG, UNKNOWN FREQ.
     Route: 030
     Dates: start: 202107
  6. LUPRON DEPOT [Suspect]
     Active Substance: LEUPROLIDE ACETATE
     Dosage: 22.5 MG, UNKNOWN FREQ.
     Route: 030
     Dates: start: 202110

REACTIONS (5)
  - Malignant neoplasm progression [Unknown]
  - Injection site necrosis [Unknown]
  - Blood testosterone increased [Unknown]
  - Injection site granuloma [Unknown]
  - Injection site ulcer [Unknown]
